FAERS Safety Report 8911536 (Version 1)
Quarter: 2012Q4

REPORT INFORMATION
  Report Type: 
  Country: US (occurrence: US)
  Receive Date: 20121116
  Receipt Date: 20121116
  Transmission Date: 20130627
  Serious: Yes (Death, Hospitalization)
  Sender: FDA-Public Use
  Company Number: US-SANOFI-AVENTIS-2012SA082601

PATIENT
  Age: 38 Year
  Sex: Female

DRUGS (1)
  1. CHLOROQUINE (SALT NOT SPECIFIED) [Suspect]
     Indication: DISCOID LUPUS ERYTHEMATOSUS
     Route: 048

REACTIONS (11)
  - Cardiomyopathy [Fatal]
  - Hypoxia [Fatal]
  - Myopathy [Unknown]
  - Muscular weakness [Unknown]
  - Blood creatine phosphokinase increased [Unknown]
  - Cardiac failure congestive [Unknown]
  - Cardiogenic shock [Unknown]
  - Atrioventricular block complete [Unknown]
  - Syncope [Unknown]
  - Dizziness [Unknown]
  - Cardio-respiratory arrest [Fatal]
